FAERS Safety Report 7943025-1 (Version None)
Quarter: 2011Q4

REPORT INFORMATION
  Report Type: 
  Country: None (occurrence: None)
  Receive Date: 20111128
  Receipt Date: 20111118
  Transmission Date: 20120403
  Serious: Yes (Hospitalization)
  Sender: FDA-Public Use
  Company Number: US-SANOFI-AVENTIS-2011SA076395

PATIENT
  Age: 57 Year
  Sex: Male

DRUGS (7)
  1. METFORMIN HCL [Concomitant]
  2. ASPIRIN [Concomitant]
  3. GLIPIZIDE [Concomitant]
  4. LANTUS [Suspect]
     Dosage: DOSE:40 UNIT(S)
     Route: 058
     Dates: start: 20110601
  5. SOLOSTAR [Suspect]
     Dates: start: 20110601
  6. CLONIDINE [Concomitant]
  7. LISINOPRIL [Concomitant]

REACTIONS (6)
  - AMNESIA [None]
  - CEREBROVASCULAR ACCIDENT [None]
  - HYPOAESTHESIA [None]
  - INJECTION SITE PAIN [None]
  - TRANSIENT ISCHAEMIC ATTACK [None]
  - BLOOD GLUCOSE INCREASED [None]
